FAERS Safety Report 15782532 (Version 1)
Quarter: 2019Q1

REPORT INFORMATION
  Report Type: Spontaneous
  Country: US (occurrence: US)
  Receive Date: 20190102
  Receipt Date: 20190102
  Transmission Date: 20190417
  Serious: Yes (Other)
  Sender: FDA-Public Use
  Company Number: US-NOVOPROD-640266

PATIENT
  Sex: Female
  Weight: 68.4 kg

DRUGS (1)
  1. NOVOLOG [Suspect]
     Active Substance: INSULIN ASPART
     Indication: TYPE 2 DIABETES MELLITUS
     Dosage: 4 UNITS BEFORE MEALS
     Route: 058
     Dates: start: 2016

REACTIONS (1)
  - Retinal vascular occlusion [Not Recovered/Not Resolved]
